FAERS Safety Report 4459368-2 (Version None)
Quarter: 2004Q3

REPORT INFORMATION
  Report Type: 
  Country: None (occurrence: None)
  Receive Date: 20040927
  Receipt Date: 20040913
  Transmission Date: 20050211
  Serious: Yes (Death)
  Sender: FDA-Public Use
  Company Number: FR-ROCHE-380356

PATIENT
  Sex: Male

DRUGS (2)
  1. ROVALCYTE [Suspect]
     Indication: DRUG USE FOR UNKNOWN INDICATION
     Dosage: DOSAGE REGIMEN REPORTED AS: 450MG.
     Route: 065
  2. CELLCEPT [Concomitant]

REACTIONS (5)
  - LEUKOPENIA [None]
  - MYOCARDITIS [None]
  - NEUTROPENIA [None]
  - SEPTIC SHOCK [None]
  - VIRAL INFECTION [None]
